FAERS Safety Report 4803105-6 (Version None)
Quarter: 2005Q4

REPORT INFORMATION
  Report Type: 
  Country: None (occurrence: None)
  Receive Date: 20051013
  Receipt Date: 20050922
  Transmission Date: 20060501
  Serious: Yes (Other)
  Sender: FDA-Public Use
  Company Number: US_0509122218

PATIENT
  Age: 45 Year
  Sex: Female

DRUGS (2)
  1. CYMBALTA [Suspect]
     Indication: STRESS INCONTINENCE
     Dosage: 30 UG/2 DAY
     Dates: start: 20051103
  2. DITROPAN   /SCH/  (OXYBUTYNIN HYDROCHLORIDE) [Concomitant]

REACTIONS (11)
  - CONFUSIONAL STATE [None]
  - CONVULSION [None]
  - FATIGUE [None]
  - HEADACHE [None]
  - LOSS OF CONSCIOUSNESS [None]
  - ORAL PAIN [None]
  - PHOTOPSIA [None]
  - RESPIRATORY DISORDER [None]
  - STARING [None]
  - TONGUE BITING [None]
  - TONIC CLONIC MOVEMENTS [None]
